FAERS Safety Report 8917267 (Version 1)
Quarter: 2012Q4

REPORT INFORMATION
  Report Type: Report from Study
  Country: US (occurrence: US)
  Receive Date: 20121120
  Receipt Date: 20121120
  Transmission Date: 20130627
  Serious: Yes (Death, Hospitalization)
  Sender: FDA-Public Use
  Company Number: US-JNJFOC-20121003004

PATIENT
  Sex: Female

DRUGS (1)
  1. DOXORUBICIN HYDROCHLORIDE (DOXIL) [Suspect]
     Indication: ENDOMETRIAL CANCER METASTATIC
     Route: 042

REACTIONS (2)
  - Malignant neoplasm progression [Fatal]
  - Cerebrovascular accident [Unknown]
